FAERS Safety Report 10057234 (Version 1)
Quarter: 2014Q2

REPORT INFORMATION
  Report Type: Spontaneous
  Country: FR (occurrence: FR)
  Receive Date: 20140403
  Receipt Date: 20140403
  Transmission Date: 20141212
  Serious: Yes (Death)
  Sender: FDA-Public Use
  Company Number: FR-BRISTOL-MYERS SQUIBB COMPANY-20570776

PATIENT
  Age: 79 Year
  Sex: Female

DRUGS (2)
  1. COUMADINE [Suspect]
     Indication: ATRIAL FIBRILLATION
     Route: 048
  2. ARIXTRA [Suspect]
     Indication: ARRHYTHMIA

REACTIONS (2)
  - Peritoneal haemorrhage [Fatal]
  - Hypovolaemic shock [Fatal]
